FAERS Safety Report 8432742-5 (Version None)
Quarter: 2012Q2

REPORT INFORMATION
  Report Type: 
  Country: None (occurrence: None)
  Receive Date: 20120323
  Receipt Date: 20110603
  Transmission Date: 20120825
  Serious: Yes (Other)
  Sender: FDA-Public Use
  Company Number: 163-21880-11060642

PATIENT
  Age: 73 Year
  Sex: Male

DRUGS (9)
  1. REVLIMID [Suspect]
     Indication: MULTIPLE MYELOMA
     Dosage: 25 MG, DAILY X 21 DAYS, PO
     Route: 048
     Dates: start: 20110309
  2. MORPHINE SULFATE INJ [Concomitant]
  3. AMLODIPINE BESYLATE [Concomitant]
  4. DEXAMETHASONE [Concomitant]
  5. PRILOSEC [Concomitant]
  6. HYDROCODONE/ACETAMINOPHEN (REMEDEINE) [Concomitant]
  7. ZOLOFT [Concomitant]
  8. HYDROXYZINE HYDROCHLORIDE [Concomitant]
  9. FUOSEMIDE (FUROSEMIDE) [Concomitant]

REACTIONS (1)
  - DEEP VEIN THROMBOSIS [None]
